FAERS Safety Report 13707178 (Version 2)
Quarter: 2017Q3

REPORT INFORMATION
  Report Type: Spontaneous
  Country: BR (occurrence: BR)
  Receive Date: 20170630
  Receipt Date: 20170818
  Transmission Date: 20171127
  Serious: Yes (Other)
  Sender: FDA-Public Use
  Company Number: BR-PFIZER INC-2017279229

PATIENT
  Age: 61 Year
  Sex: Female

DRUGS (7)
  1. ZETRON [Concomitant]
     Dosage: UNK
  2. SYNTHROID [Concomitant]
     Active Substance: LEVOTHYROXINE SODIUM
     Dosage: UNK
  3. DUAL 60 [Concomitant]
     Dosage: UNK
  4. SINVASCOR [Concomitant]
     Active Substance: SIMVASTATIN
     Dosage: UNK
  5. FRONTAL [Suspect]
     Active Substance: ALPRAZOLAM
     Indication: PANIC ATTACK
     Dosage: 2 MG, 3X/DAY
     Dates: start: 1987
  6. PROZAC [Concomitant]
     Active Substance: FLUOXETINE HYDROCHLORIDE
     Dosage: UNK
  7. FRONTAL [Suspect]
     Active Substance: ALPRAZOLAM
     Indication: DEPRESSION

REACTIONS (7)
  - Emotional disorder [Unknown]
  - Glucose tolerance impaired [Unknown]
  - Blood glucose increased [Unknown]
  - Intentional product misuse [Unknown]
  - Neoplasm malignant [Recovered/Resolved]
  - Asthenia [Unknown]
  - Stress [Unknown]

NARRATIVE: CASE EVENT DATE: 2016
